FAERS Safety Report 7093328-0 (Version None)
Quarter: 2010Q4

REPORT INFORMATION
  Report Type: 
  Country: None (occurrence: None)
  Receive Date: 20101110
  Receipt Date: 20100728
  Transmission Date: 20110411
  Serious: Yes (Death, Other)
  Sender: FDA-Public Use
  Company Number: US-BAYER-201039234NA

PATIENT
  Age: 80 Year
  Sex: Male

DRUGS (1)
  1. TRASYLOL [Suspect]
     Indication: PRODUCT USED FOR UNKNOWN INDICATION
     Route: 042
     Dates: start: 20061008, end: 20061008

REACTIONS (9)
  - ACUTE MYOCARDIAL INFARCTION [None]
  - ANXIETY [None]
  - AORTIC DISSECTION [None]
  - CARDIAC ARREST [None]
  - EMOTIONAL DISTRESS [None]
  - HYPOXIC-ISCHAEMIC ENCEPHALOPATHY [None]
  - INJURY [None]
  - PAIN [None]
  - RENAL FAILURE ACUTE [None]
